FAERS Safety Report 12414024 (Version 2)
Quarter: 2016Q2

REPORT INFORMATION
  Report Type: Spontaneous
  Country: US (occurrence: US)
  Receive Date: 20160527
  Receipt Date: 20160616
  Transmission Date: 20160815
  Serious: No
  Sender: FDA-Public Use
  Company Number: US-GILEAD-2016-0215969

PATIENT
  Age: 63 Year
  Sex: Male
  Weight: 71 kg

DRUGS (20)
  1. CAYSTON [Suspect]
     Active Substance: AZTREONAM
     Indication: PRODUCT USED FOR UNKNOWN INDICATION
     Dosage: UNK
     Route: 065
  2. MULTIVITAMINS [Concomitant]
     Active Substance: VITAMINS
  3. REVATIO [Concomitant]
     Active Substance: SILDENAFIL CITRATE
  4. LASIX [Concomitant]
     Active Substance: FUROSEMIDE
  5. TUDORZA GENUAIR [Concomitant]
     Active Substance: ACLIDINIUM BROMIDE
  6. AZITHROMYCIN ANHYDROUS. [Concomitant]
     Active Substance: AZITHROMYCIN ANHYDROUS
  7. LIDOCAINE. [Concomitant]
     Active Substance: LIDOCAINE
  8. QVAR [Concomitant]
     Active Substance: BECLOMETHASONE DIPROPIONATE
  9. DALIRESP [Concomitant]
     Active Substance: ROFLUMILAST
  10. LORAZEPAM. [Concomitant]
     Active Substance: LORAZEPAM
  11. TESTOSTERONE. [Concomitant]
     Active Substance: TESTOSTERONE
  12. PRAVASTATIN [Concomitant]
     Active Substance: PRAVASTATIN\PRAVASTATIN SODIUM
  13. NYSTATIN. [Concomitant]
     Active Substance: NYSTATIN
  14. VENTOLIN [Concomitant]
     Active Substance: ALBUTEROL SULFATE
  15. PREDNISONE. [Concomitant]
     Active Substance: PREDNISONE
  16. MORPHINE [Concomitant]
     Active Substance: MORPHINE
  17. OXYGEN. [Concomitant]
     Active Substance: OXYGEN
  18. SYMBICORT [Concomitant]
     Active Substance: BUDESONIDE\FORMOTEROL FUMARATE DIHYDRATE
  19. BACTRIM [Concomitant]
     Active Substance: SULFAMETHOXAZOLE\TRIMETHOPRIM
  20. HYDROMORPHONE [Concomitant]
     Active Substance: HYDROMORPHONE

REACTIONS (3)
  - Chronic obstructive pulmonary disease [Recovered/Resolved]
  - Dyspnoea [Recovered/Resolved]
  - Wheezing [Recovered/Resolved]

NARRATIVE: CASE EVENT DATE: 20160524
